FAERS Safety Report 8438383-8 (Version None)
Quarter: 2012Q2

REPORT INFORMATION
  Report Type: 
  Country: None (occurrence: None)
  Receive Date: 20120614
  Receipt Date: 20120612
  Transmission Date: 20120825
  Serious: Yes (Death)
  Sender: FDA-Public Use
  Company Number: GB-MERCK-1105GBR00086

PATIENT

DRUGS (1)
  1. SINEMET [Suspect]
     Route: 048

REACTIONS (1)
  - DEATH [None]
